FAERS Safety Report 8865474 (Version 1)
Quarter: 2012Q4

REPORT INFORMATION
  Report Type: 
  Country: US (occurrence: US)
  Receive Date: 20121024
  Receipt Date: 20121024
  Transmission Date: 20130627
  Serious: No
  Sender: FDA-Public Use
  Company Number: US-AMGEN-USASP2012003285

PATIENT
  Age: 58 Year
  Sex: Female
  Weight: 90.7 kg

DRUGS (25)
  1. ENBREL [Suspect]
     Indication: PSORIATIC ARTHROPATHY
     Dosage: 50 mg, UNK
     Route: 058
  2. SINGULAIR [Concomitant]
     Dosage: 10 mg, UNK
     Route: 048
  3. ADVAIR [Concomitant]
     Dosage: UNK
  4. NASACORT AQ [Concomitant]
     Dosage: 55 mug, ac
  5. BENAZEPRIL HCL W/HYDROCHLOROTHIAZIDE [Concomitant]
     Dosage: UNK
     Route: 048
  6. VERELAN [Concomitant]
     Dosage: 120 mg, UNK
     Route: 048
  7. BABY ASPIRIN [Concomitant]
     Dosage: 81 mg, UNK
     Route: 048
  8. NEURONTIN [Concomitant]
     Dosage: 300 mg, UNK
     Route: 048
  9. FOLIC ACID [Concomitant]
     Dosage: UNK
     Route: 048
  10. METHOTREXATE [Concomitant]
     Dosage: 2.5 mg, UNK
     Route: 048
  11. FLEXERIL                           /00428402/ [Concomitant]
     Dosage: 10 mg, UNK
     Route: 048
  12. NEXIUM                             /01479302/ [Concomitant]
     Dosage: 20 mg, UNK
     Route: 048
  13. LEVOTHYROXIN [Concomitant]
     Dosage: 100 mug, UNK
     Route: 048
  14. BETAMETH DIPROPIONATE [Concomitant]
     Dosage: UNK
     Route: 061
  15. DOVONEX [Concomitant]
     Dosage: UNK
     Route: 061
  16. LUXIQ [Concomitant]
     Dosage: UNK
  17. CALCIUM [Concomitant]
     Dosage: 500 mg, UNK
     Route: 048
  18. GLIMEPIRID [Concomitant]
     Dosage: 1 mg, UNK
     Route: 048
  19. METFORMIN [Concomitant]
     Dosage: 500 mg, UNK
     Route: 048
  20. TALACEN [Concomitant]
     Dosage: UNK
     Route: 048
  21. TYLENOL 8 HOUR [Concomitant]
     Dosage: 650 mg, UNK
     Route: 048
  22. CLARITIN                           /00413701/ [Concomitant]
     Dosage: 10 mg, UNK
     Route: 048
  23. ALAVERT [Concomitant]
     Dosage: 10 mg, UNK
     Route: 048
  24. ZYRTEC [Concomitant]
     Dosage: 10 mg, UNK
     Route: 048
  25. PROVENTIL                          /00139501/ [Concomitant]
     Dosage: 90 mug, UNK

REACTIONS (3)
  - Cough [Unknown]
  - Upper-airway cough syndrome [Unknown]
  - Viral infection [Unknown]
